FAERS Safety Report 23264722 (Version 1)
Quarter: 2023Q4

REPORT INFORMATION
  Report Type: Other
  Country: ZA (occurrence: None)
  Receive Date: 20231206
  Receipt Date: 20231206
  Transmission Date: 20240109
  Serious: Yes (Other)
  Sender: FDA-Public Use
  Company Number: ZA-ROCHE-3073615

PATIENT
  Sex: Male

DRUGS (1)
  1. OCREVUS [Suspect]
     Active Substance: OCRELIZUMAB
     Indication: Primary progressive multiple sclerosis
     Dosage: THEN 600 MG ONCE IN 6 MONTHS
     Route: 041
     Dates: start: 20211201, end: 20211215

REACTIONS (11)
  - Drug ineffective [Unknown]
  - Anxiety [Unknown]
  - Stress [Unknown]
  - Vision blurred [Unknown]
  - Balance disorder [Unknown]
  - Enuresis [Unknown]
  - Multiple sclerosis [Unknown]
  - Intervertebral disc disorder [Unknown]
  - Intervertebral disc protrusion [Unknown]
  - Intervertebral disc disorder [Unknown]
  - Pineal gland cyst [Unknown]
